FAERS Safety Report 16094508 (Version 1)
Quarter: 2019Q1

REPORT INFORMATION
  Report Type: Spontaneous
  Country: US (occurrence: US)
  Receive Date: 20190320
  Receipt Date: 20190320
  Transmission Date: 20190418
  Serious: No
  Sender: FDA-Public Use
  Company Number: US-PFIZER INC-2019115905

PATIENT
  Age: 86 Year

DRUGS (7)
  1. DOXYCYCLINE CALCIUM [Suspect]
     Active Substance: DOXYCYCLINE CALCIUM
     Dosage: UNK
  2. RELAFEN [Suspect]
     Active Substance: NABUMETONE
     Dosage: UNK
  3. VICODIN [Suspect]
     Active Substance: ACETAMINOPHEN\HYDROCODONE BITARTRATE
     Dosage: UNK
  4. CIPROFLOXACIN. [Suspect]
     Active Substance: CIPROFLOXACIN
     Dosage: UNK
  5. TRAMADOL. [Suspect]
     Active Substance: TRAMADOL
     Dosage: UNK
  6. FOSAMAX [Suspect]
     Active Substance: ALENDRONATE SODIUM
     Dosage: UNK
  7. DEMEROL [Suspect]
     Active Substance: MEPERIDINE HYDROCHLORIDE
     Dosage: UNK

REACTIONS (1)
  - Drug hypersensitivity [Unknown]
